FAERS Safety Report 8015518-2 (Version None)
Quarter: 2011Q4

REPORT INFORMATION
  Report Type: 
  Country: None (occurrence: None)
  Receive Date: 20111227
  Receipt Date: 20111227
  Transmission Date: 20120403
  Serious: Yes (Death)
  Sender: FDA-Public Use
  Company Number: None

PATIENT
  Age: 53 Year
  Sex: Male
  Weight: 68.0396 kg

DRUGS (2)
  1. XANAX [Suspect]
     Indication: SMOKING CESSATION THERAPY
     Dates: start: 20110501
  2. XANAX [Suspect]
     Indication: SMOKING CESSATION THERAPY
     Dates: start: 20110301

REACTIONS (1)
  - COMPLETED SUICIDE [None]
